FAERS Safety Report 9337426 (Version 1)
Quarter: 2013Q2

REPORT INFORMATION
  Report Type: Spontaneous
  Country: JP (occurrence: JP)
  Receive Date: 20130607
  Receipt Date: 20130607
  Transmission Date: 20140414
  Serious: Yes (Life-Threatening)
  Sender: FDA-Public Use
  Company Number: JP-WATSON-2013-09717

PATIENT
  Age: 54 Year
  Sex: Male
  Weight: 49 kg

DRUGS (9)
  1. MEPIVACAINE HYDROCHLORIDE (WATSON LABORATORIES) [Suspect]
     Indication: EPIDURAL ANAESTHESIA
     Dosage: 5 ML, SINGLE DOSE OF 1% MEPIVACAINE
     Route: 008
  2. LIDOCAINE HYDROCHLORIDE (WATSON LABORATORIES) [Suspect]
     Indication: EPIDURAL TEST DOSE
     Dosage: 3 ML, SINGLE OF LIDOCAINE 1%
     Route: 008
  3. PROPOFOL (UNKNOWN) [Suspect]
     Indication: ANAESTHESIA
     Dosage: 70 MG, SINGLE
     Route: 065
  4. FENTANYL CITRATE (WATSON LABORATORIES) [Suspect]
     Indication: ANAESTHESIA
     Dosage: 50 ?G, SINGLE
     Route: 065
  5. VECURONIUM BROMIDE (WATSON LABORATORIES) [Suspect]
     Indication: ANAESTHESIA
     Dosage: 5 MG, SINGLE
     Route: 065
  6. PERICIAZINE [Suspect]
     Indication: SCHIZOPHRENIA
     Dosage: 10 MG, DAILY
     Route: 065
  7. BROMPERIDOL [Suspect]
     Indication: SCHIZOPHRENIA
     Dosage: 3 MG, DAILY
     Route: 065
  8. SEVOFLURANE [Suspect]
     Indication: ANAESTHESIA
     Dosage: 1-1.5%
     Route: 065
  9. OXYGEN [Concomitant]
     Indication: ANAESTHESIA
     Dosage: 1L/MIN
     Route: 065

REACTIONS (4)
  - Ventricular fibrillation [Recovered/Resolved]
  - Hypotension [Recovered/Resolved]
  - Dehydration [None]
  - Cardiac arrest [None]
